FAERS Safety Report 7837563-X (Version None)
Quarter: 2011Q4

REPORT INFORMATION
  Report Type: 
  Country: None (occurrence: None)
  Receive Date: 20111024
  Receipt Date: 20110201
  Transmission Date: 20120403
  Serious: No
  Sender: FDA-Public Use
  Company Number: US-ABBOTT-11P-163-0702758-00

PATIENT
  Age: 40 Year
  Sex: Female

DRUGS (1)
  1. LUPRON DEPOT [Suspect]
     Indication: ENDOMETRIOSIS
     Dates: start: 20100601, end: 20101201

REACTIONS (6)
  - DIZZINESS [None]
  - ARTHRALGIA [None]
  - AFFECT LABILITY [None]
  - NODULE [None]
  - DEPRESSION [None]
  - SUICIDAL IDEATION [None]
